FAERS Safety Report 6826735-9 (Version None)
Quarter: 2010Q3

REPORT INFORMATION
  Report Type: 
  Country: None (occurrence: None)
  Receive Date: 20100709
  Receipt Date: 20100701
  Transmission Date: 20110219
  Serious: No
  Sender: FDA-Public Use
  Company Number: US-PFIZER INC-2010079467

PATIENT
  Sex: Male
  Weight: 34.014 kg

DRUGS (3)
  1. CORTEF [Suspect]
     Indication: HYPOPITUITARISM
     Dosage: UNK
     Route: 048
     Dates: start: 20060701
  2. SYNTHROID [Concomitant]
     Indication: HYPOPITUITARISM
     Dosage: 75 UG, 1X/DAY
  3. TEV-TROPIN [Concomitant]
     Indication: HYPOPITUITARISM
     Dosage: 1.1 MG, 1X/DAY

REACTIONS (6)
  - COUGH [None]
  - FATIGUE [None]
  - INCREASED UPPER AIRWAY SECRETION [None]
  - MALAISE [None]
  - PYREXIA [None]
  - SINUSITIS [None]
